FAERS Safety Report 5858445-9 (Version None)
Quarter: 2008Q3

REPORT INFORMATION
  Report Type: 
  Country: None (occurrence: None)
  Receive Date: 20080826
  Receipt Date: 20080818
  Transmission Date: 20090109
  Serious: Yes (Other)
  Sender: FDA-Public Use
  Company Number: PHHO2008US07933

PATIENT
  Sex: Female

DRUGS (5)
  1. CGS 20267 T30748+FCTAB [Suspect]
     Indication: BREAST CANCER
     Dosage: 2.5 MG, QD
     Route: 048
     Dates: start: 20070911
  2. AVASTIN [Suspect]
     Dosage: 10 MG/KG, Q 2 WEEKS
     Route: 042
     Dates: start: 20070822, end: 20071205
  3. ADRIAMYCIN PFS [Suspect]
  4. CYTOXAN [Concomitant]
  5. TAXOL [Concomitant]

REACTIONS (6)
  - CARDIOTOXICITY [None]
  - DILATATION VENTRICULAR [None]
  - DYSPNOEA EXERTIONAL [None]
  - EJECTION FRACTION DECREASED [None]
  - FATIGUE [None]
  - LEFT VENTRICULAR DYSFUNCTION [None]
